FAERS Safety Report 8394661-2 (Version None)
Quarter: 2012Q2

REPORT INFORMATION
  Report Type: 
  Country: None (occurrence: None)
  Receive Date: 20120530
  Receipt Date: 20120523
  Transmission Date: 20120825
  Serious: Yes (Other)
  Sender: FDA-Public Use
  Company Number: US-PFIZER INC-2012122421

PATIENT
  Sex: Female

DRUGS (2)
  1. LYRICA [Suspect]
     Dosage: UNK
     Route: 048
  2. PRISTIQ [Suspect]
     Dosage: UNK
     Route: 048

REACTIONS (7)
  - POST-TRAUMATIC STRESS DISORDER [None]
  - DEPRESSED MOOD [None]
  - AMNESIA [None]
  - BIPOLAR DISORDER [None]
  - THINKING ABNORMAL [None]
  - FIBROMYALGIA [None]
  - MENTAL DISORDER [None]
